FAERS Safety Report 12914596 (Version 1)
Quarter: 2016Q4

REPORT INFORMATION
  Report Type: Spontaneous
  Country: US (occurrence: US)
  Receive Date: 20161106
  Receipt Date: 20161106
  Transmission Date: 20170207
  Serious: No
  Sender: FDA-Public Use
  Company Number: US-RELYPSA-RLY2016001868

PATIENT
  Sex: Female

DRUGS (19)
  1. VITAMIN C [Concomitant]
     Active Substance: ASCORBIC ACID
  2. MYRBETRIQ [Concomitant]
     Active Substance: MIRABEGRON
  3. VITAMIN D3 [Concomitant]
     Active Substance: CHOLECALCIFEROL
  4. BUPROPION HCL [Concomitant]
     Active Substance: BUPROPION HYDROCHLORIDE
  5. HUMALOG [Concomitant]
     Active Substance: INSULIN LISPRO
  6. CARVEDILOL. [Concomitant]
     Active Substance: CARVEDILOL
  7. ROCALTROL [Concomitant]
     Active Substance: CALCITRIOL
  8. ELIQUIS [Concomitant]
     Active Substance: APIXABAN
  9. CALCIUM [Concomitant]
     Active Substance: CALCIUM
  10. PLAVIX [Concomitant]
     Active Substance: CLOPIDOGREL BISULFATE
  11. NORVASC [Concomitant]
     Active Substance: AMLODIPINE BESYLATE
  12. NITROSTAT [Concomitant]
     Active Substance: NITROGLYCERIN
  13. LANTUS [Concomitant]
     Active Substance: INSULIN GLARGINE
  14. VELTASSA [Suspect]
     Active Substance: PATIROMER
     Indication: HYPERKALAEMIA
     Dosage: 8.4 MG, QD
     Route: 048
  15. LEVOTHYROXINE SODIUM. [Concomitant]
     Active Substance: LEVOTHYROXINE SODIUM
  16. GABAPENTIN. [Concomitant]
     Active Substance: GABAPENTIN
  17. ATORVASTATIN [Concomitant]
     Active Substance: ATORVASTATIN
  18. MULTAQ [Concomitant]
     Active Substance: DRONEDARONE
  19. FISH OIL [Concomitant]
     Active Substance: FISH OIL

REACTIONS (2)
  - Drug dose omission [Unknown]
  - No adverse event [Unknown]
